FAERS Safety Report 14763258 (Version 1)
Quarter: 2018Q2

REPORT INFORMATION
  Report Type: Spontaneous
  Country: ES (occurrence: ES)
  Receive Date: 20180416
  Receipt Date: 20180416
  Transmission Date: 20180711
  Serious: Yes (Other)
  Sender: FDA-Public Use
  Company Number: ES-SUN PHARMACEUTICAL INDUSTRIES LTD-2018RR-169997

PATIENT
  Age: 74 Year
  Sex: Male

DRUGS (2)
  1. RIVASTIGMINE. [Suspect]
     Active Substance: RIVASTIGMINE
     Indication: PSYCHOTIC SYMPTOM
     Dosage: 12 MG, QD
     Route: 065
  2. DONEPEZIL. [Suspect]
     Active Substance: DONEPEZIL
     Indication: PSYCHOTIC SYMPTOM
     Dosage: UNK
     Route: 065

REACTIONS (2)
  - Muscle rigidity [Not Recovered/Not Resolved]
  - Akinesia [Not Recovered/Not Resolved]
